FAERS Safety Report 21974189 (Version 1)
Quarter: 2023Q1

REPORT INFORMATION
  Report Type: Spontaneous
  Country: DE (occurrence: DE)
  Receive Date: 20230209
  Receipt Date: 20230209
  Transmission Date: 20230417
  Serious: Yes (Hospitalization)
  Sender: FDA-Public Use
  Company Number: DE-NOVOPROD-1021141

PATIENT
  Age: 72 Month
  Sex: Male
  Weight: 16.4 kg

DRUGS (1)
  1. NORDITROPIN [Suspect]
     Active Substance: SOMATROPIN
     Indication: Small for dates baby
     Dosage: 0.8 MG, QD
     Route: 058
     Dates: start: 20220214

REACTIONS (2)
  - Vomiting [Recovered/Resolved]
  - Infection [Recovered/Resolved]
